FAERS Safety Report 9659453 (Version 1)
Quarter: 2013Q4

REPORT INFORMATION
  Report Type: Spontaneous
  Country: US (occurrence: US)
  Receive Date: 20131031
  Receipt Date: 20131031
  Transmission Date: 20140711
  Serious: Yes (Hospitalization, Other)
  Sender: FDA-Public Use
  Company Number: US-SA-2013SA110518

PATIENT
  Sex: Female

DRUGS (2)
  1. LANTUS SOLOSTAR [Suspect]
     Indication: TYPE 2 DIABETES MELLITUS
     Route: 058
     Dates: start: 201012
  2. SOLOSTAR [Concomitant]
     Indication: TYPE 2 DIABETES MELLITUS

REACTIONS (9)
  - Renal disorder [Unknown]
  - Malaise [Unknown]
  - Skin cancer [Unknown]
  - Hypoglycaemia [Unknown]
  - Malaise [Unknown]
  - Nerve injury [Unknown]
  - Visual acuity reduced [Unknown]
  - Injection site haemorrhage [Unknown]
  - Injection site bruising [Unknown]
